FAERS Safety Report 12236623 (Version 1)
Quarter: 2016Q2

REPORT INFORMATION
  Report Type: Spontaneous
  Country: US (occurrence: US)
  Receive Date: 20160405
  Receipt Date: 20160405
  Transmission Date: 20160815
  Serious: Yes (Hospitalization)
  Sender: FDA-Public Use
  Company Number: US-JNJFOC-20160318576

PATIENT
  Age: 23 Year
  Sex: Female

DRUGS (3)
  1. INSULIN GLARGINE [Concomitant]
     Active Substance: INSULIN GLARGINE
     Indication: TYPE 1 DIABETES MELLITUS
     Route: 058
     Dates: end: 2015
  2. INSULIN GLARGINE [Concomitant]
     Active Substance: INSULIN GLARGINE
     Indication: TYPE 1 DIABETES MELLITUS
     Dosage: THE DOSE WAS DECREASED 30-10-8-2 (UNITS UNSPECIFIED).
     Route: 058
     Dates: start: 2015
  3. INVOKANA [Suspect]
     Active Substance: CANAGLIFLOZIN
     Indication: TYPE 1 DIABETES MELLITUS
     Route: 048
     Dates: start: 2015

REACTIONS (3)
  - Off label use [Unknown]
  - Product use issue [Unknown]
  - Ketoacidosis [Unknown]

NARRATIVE: CASE EVENT DATE: 2015
